FAERS Safety Report 6492911-0 (Version None)
Quarter: 2009Q4

REPORT INFORMATION
  Report Type: 
  Country: None (occurrence: None)
  Receive Date: 20091214
  Receipt Date: 20091203
  Transmission Date: 20100525
  Serious: Yes (Other)
  Sender: FDA-Public Use
  Company Number: PHHY2009US54675

PATIENT
  Age: 68 Year
  Sex: Female

DRUGS (5)
  1. HYDRALAZINE HCL [Suspect]
  2. METOPROLOL [Suspect]
  3. FUROSEMIDE [Suspect]
  4. ASPIRIN [Suspect]
  5. AMLODIPINE [Suspect]

REACTIONS (2)
  - ABDOMINAL PAIN UPPER [None]
  - GASTROINTESTINAL TRACT MUCOSAL PIGMENTATION [None]
